FAERS Safety Report 21275155 (Version 7)
Quarter: 2023Q1

REPORT INFORMATION
  Report Type: Other
  Country: CA (occurrence: None)
  Receive Date: 20220831
  Receipt Date: 20230316
  Transmission Date: 20230417
  Serious: Yes (Other)
  Sender: FDA-Public Use
  Company Number: CA-ROCHE-1142496

PATIENT
  Age: 44 Year
  Sex: Female
  Weight: 70 kg

DRUGS (28)
  1. ACTEMRA [Suspect]
     Active Substance: TOCILIZUMAB
     Indication: Rheumatoid arthritis
     Route: 042
     Dates: start: 20120905, end: 20130219
  2. ACTEMRA [Suspect]
     Active Substance: TOCILIZUMAB
     Route: 042
     Dates: start: 20130325, end: 20131202
  3. ACTEMRA [Suspect]
     Active Substance: TOCILIZUMAB
     Route: 042
     Dates: start: 20140103, end: 20140325
  4. ACTEMRA [Suspect]
     Active Substance: TOCILIZUMAB
     Route: 042
     Dates: start: 20140508, end: 20140602
  5. ACTEMRA [Suspect]
     Active Substance: TOCILIZUMAB
     Route: 042
     Dates: start: 20140630, end: 20140630
  6. ACTEMRA [Suspect]
     Active Substance: TOCILIZUMAB
     Route: 042
     Dates: start: 20140731
  7. ACTEMRA [Suspect]
     Active Substance: TOCILIZUMAB
     Dosage: 54 INFUSION
     Route: 042
     Dates: start: 20170602
  8. ACTEMRA [Suspect]
     Active Substance: TOCILIZUMAB
     Route: 042
     Dates: start: 20170720
  9. ACTEMRA [Suspect]
     Active Substance: TOCILIZUMAB
     Route: 042
     Dates: start: 20171116, end: 20180426
  10. ACTEMRA [Suspect]
     Active Substance: TOCILIZUMAB
     Route: 042
     Dates: start: 20180328, end: 20180328
  11. ACTEMRA [Suspect]
     Active Substance: TOCILIZUMAB
     Route: 042
     Dates: start: 20180523, end: 20190117
  12. ACTEMRA [Suspect]
     Active Substance: TOCILIZUMAB
     Route: 042
     Dates: start: 2019
  13. ACTEMRA [Suspect]
     Active Substance: TOCILIZUMAB
     Route: 042
     Dates: start: 2019
  14. ACTEMRA [Suspect]
     Active Substance: TOCILIZUMAB
     Route: 042
     Dates: start: 20190521, end: 20200507
  15. ACTEMRA [Suspect]
     Active Substance: TOCILIZUMAB
     Route: 042
     Dates: start: 20200601
  16. ACTEMRA [Suspect]
     Active Substance: TOCILIZUMAB
     Dosage: NO PIRS IN A PART OF THIS PERIOD
     Route: 042
     Dates: start: 20190117
  17. ACTEMRA [Suspect]
     Active Substance: TOCILIZUMAB
     Route: 042
     Dates: start: 20190521, end: 20200507
  18. ACTEMRA [Suspect]
     Active Substance: TOCILIZUMAB
     Route: 042
     Dates: start: 20200601, end: 20220804
  19. ACTEMRA [Suspect]
     Active Substance: TOCILIZUMAB
     Route: 042
     Dates: start: 20220829, end: 20220829
  20. ACTEMRA [Suspect]
     Active Substance: TOCILIZUMAB
     Route: 042
     Dates: start: 20220926, end: 20221219
  21. ACTEMRA [Suspect]
     Active Substance: TOCILIZUMAB
     Route: 042
     Dates: start: 20230118
  22. ACTEMRA [Suspect]
     Active Substance: TOCILIZUMAB
     Indication: Rheumatoid arthritis
     Route: 058
     Dates: start: 20190214, end: 20190502
  23. ACTEMRA [Suspect]
     Active Substance: TOCILIZUMAB
     Route: 058
     Dates: start: 20190214, end: 201904
  24. CIPRO [Suspect]
     Active Substance: CIPROFLOXACIN HYDROCHLORIDE
     Indication: Urinary tract infection
     Dosage: ONGOING
     Route: 065
     Dates: start: 2019
  25. IBUPROFEN [Concomitant]
     Active Substance: IBUPROFEN
     Indication: Product used for unknown indication
  26. VOLTAREN [Concomitant]
     Active Substance: DICLOFENAC SODIUM
     Indication: Product used for unknown indication
  27. EMU OIL [Concomitant]
     Active Substance: EMU OIL
     Indication: Acne
  28. OMEGA 3 [Concomitant]
     Active Substance: CAPSAICIN
     Indication: Product used for unknown indication

REACTIONS (68)
  - Hypoaesthesia [Recovered/Resolved]
  - Ankle fracture [Not Recovered/Not Resolved]
  - Headache [Not Recovered/Not Resolved]
  - Abdominal pain lower [Recovered/Resolved]
  - Acne [Recovering/Resolving]
  - Swelling [Recovered/Resolved]
  - Pain [Not Recovered/Not Resolved]
  - Weight increased [Unknown]
  - Vascular access site pain [Recovered/Resolved]
  - Migraine [Recovered/Resolved]
  - Nasal congestion [Not Recovered/Not Resolved]
  - Sputum discoloured [Not Recovered/Not Resolved]
  - Urinary tract infection [Unknown]
  - Paranasal sinus inflammation [Unknown]
  - Flatulence [Not Recovered/Not Resolved]
  - Abdominal distension [Not Recovered/Not Resolved]
  - Weight decreased [Unknown]
  - Injection site hyperaesthesia [Unknown]
  - Pain in extremity [Not Recovered/Not Resolved]
  - Neck pain [Unknown]
  - Conjunctivitis [Unknown]
  - Joint stiffness [Not Recovered/Not Resolved]
  - Pyrexia [Recovered/Resolved]
  - Nasopharyngitis [Recovered/Resolved]
  - Ecchymosis [Unknown]
  - Scab [Unknown]
  - Fall [Unknown]
  - Headache [Unknown]
  - Chills [Unknown]
  - Abdominal pain upper [Unknown]
  - Vomiting [Unknown]
  - Food allergy [Not Recovered/Not Resolved]
  - Infusion site extravasation [Recovered/Resolved]
  - Dyspnoea [Unknown]
  - Heart rate decreased [Unknown]
  - Tooth abscess [Unknown]
  - Oropharyngeal pain [Not Recovered/Not Resolved]
  - Pyelonephritis [Recovered/Resolved]
  - Cough [Not Recovered/Not Resolved]
  - Increased upper airway secretion [Not Recovered/Not Resolved]
  - Tooth abscess [Recovering/Resolving]
  - Dysphonia [Not Recovered/Not Resolved]
  - Fatigue [Not Recovered/Not Resolved]
  - Arthralgia [Not Recovered/Not Resolved]
  - Upper respiratory tract infection [Recovered/Resolved]
  - Hyperaesthesia [Not Recovered/Not Resolved]
  - Toothache [Recovered/Resolved]
  - Sinusitis [Recovered/Resolved]
  - Headache [Recovered/Resolved]
  - Thermal burn [Unknown]
  - Therapeutic product effect decreased [Unknown]
  - Peripheral swelling [Recovering/Resolving]
  - Limb mass [Unknown]
  - Drug intolerance [Unknown]
  - Ankle fracture [Unknown]
  - Blood pressure systolic increased [Unknown]
  - Pyrexia [Recovered/Resolved]
  - Laryngitis [Not Recovered/Not Resolved]
  - Blood pressure diastolic increased [Unknown]
  - Ear pain [Recovered/Resolved]
  - Aphonia [Recovered/Resolved]
  - Neutropenia [Not Recovered/Not Resolved]
  - White blood cell count decreased [Unknown]
  - Food intolerance [Unknown]
  - Blister [Recovered/Resolved]
  - Infection [Recovered/Resolved]
  - Joint swelling [Recovered/Resolved]
  - Peripheral swelling [Recovered/Resolved]

NARRATIVE: CASE EVENT DATE: 20120908
